FAERS Safety Report 6401035-X (Version None)
Quarter: 2009Q4

REPORT INFORMATION
  Report Type: 
  Country: None (occurrence: None)
  Receive Date: 20091015
  Receipt Date: 20091009
  Transmission Date: 20100525
  Serious: Yes (Hospitalization)
  Sender: FDA-Public Use
  Company Number: IL-RANBAXY-2009RR-28594

PATIENT
  Age: 19 Year
  Sex: Female

DRUGS (2)
  1. FLUOXETINE [Suspect]
     Indication: ANXIETY
  2. METOCLOPRAMIDE [Suspect]
     Indication: VOMITING

REACTIONS (2)
  - DRUG INTERACTION [None]
  - SEROTONIN SYNDROME [None]
